FAERS Safety Report 18712022 (Version 1)
Quarter: 2021Q1

REPORT INFORMATION
  Report Type: Spontaneous
  Country: US (occurrence: US)
  Receive Date: 20210106
  Receipt Date: 20210106
  Transmission Date: 20210419
  Serious: Yes (Other)
  Sender: FDA-Public Use
  Company Number: None

PATIENT

DRUGS (1)
  1. CVS HEALTH SPF 70 SHEEER FACE AND BODY SUNSTICK (ZINC OXIDE) [Suspect]
     Active Substance: ZINC OXIDE
     Indication: PROPHYLAXIS

REACTIONS (1)
  - Giant papillary conjunctivitis [None]

NARRATIVE: CASE EVENT DATE: 20210104
